FAERS Safety Report 24918201 (Version 1)
Quarter: 2025Q1

REPORT INFORMATION
  Report Type: Spontaneous
  Country: GR (occurrence: GR)
  Receive Date: 20250203
  Receipt Date: 20250203
  Transmission Date: 20250408
  Serious: Yes (Death)
  Sender: ELI LILLY AND COMPANY
  Company Number: GR-ELI_LILLY_AND_COMPANY-GR202501020205

PATIENT
  Age: 56 Year
  Sex: Male
  Weight: 160 kg

DRUGS (1)
  1. MOUNJARO [Suspect]
     Active Substance: TIRZEPATIDE
     Indication: Product used for unknown indication
     Route: 058

REACTIONS (1)
  - Cardiac arrest [Fatal]
